FAERS Safety Report 19788506 (Version 3)
Quarter: 2021Q4

REPORT INFORMATION
  Report Type: Spontaneous
  Country: JP (occurrence: JP)
  Receive Date: 20210903
  Receipt Date: 20211116
  Transmission Date: 20220303
  Serious: Yes (Life-Threatening, Hospitalization, Other)
  Sender: FDA-Public Use
  Company Number: JP-MERCK HEALTHCARE KGAA-9238994

PATIENT
  Age: 28 Year
  Sex: Female

DRUGS (3)
  1. INSULIN LISPRO [Suspect]
     Active Substance: INSULIN LISPRO
     Indication: Suicide attempt
     Dosage: 300 U, 1X
  2. INSULIN GLARGINE [Suspect]
     Active Substance: INSULIN GLARGINE
     Indication: Suicide attempt
     Dosage: 450 U, 1X
  3. METFORMIN HYDROCHLORIDE [Suspect]
     Active Substance: METFORMIN HYDROCHLORIDE
     Indication: Suicide attempt
     Dosage: 87500 MG, 1X

REACTIONS (4)
  - Lactic acidosis [Recovered/Resolved]
  - Cardio-respiratory arrest [Recovered/Resolved]
  - Altered state of consciousness [Recovered/Resolved]
  - Intentional overdose [Recovered/Resolved]
